FAERS Safety Report 6399372-0 (Version None)
Quarter: 2009Q4

REPORT INFORMATION
  Report Type: 
  Country: None (occurrence: None)
  Receive Date: 20091007
  Receipt Date: 20091007
  Transmission Date: 20100525
  Serious: No
  Sender: FDA-Public Use
  Company Number: None

PATIENT
  Sex: Female

DRUGS (1)
  1. METOPROLOL SUCCINATE [Suspect]
     Indication: HYPERTENSION
     Dosage: 25MG XL ONE DAILY ORAL
     Route: 048
     Dates: start: 20090201

REACTIONS (2)
  - DIZZINESS [None]
  - PRODUCT QUALITY ISSUE [None]
